FAERS Safety Report 7784545-2 (Version None)
Quarter: 2011Q3

REPORT INFORMATION
  Report Type: 
  Country: None (occurrence: None)
  Receive Date: 20110928
  Receipt Date: 20110914
  Transmission Date: 20111222
  Serious: No
  Sender: FDA-Public Use
  Company Number: US-B.I. PHARMACEUTICALS,INC./RIDGEFIELD-2011-BP-19477BP

PATIENT
  Sex: Male

DRUGS (7)
  1. MEDICATION NOT FURTHER SPECIFIED [Concomitant]
     Indication: HYPERTENSION
  2. GLIPIZIDE [Concomitant]
  3. PRADAXA [Suspect]
     Indication: ANTICOAGULANT THERAPY
  4. EXFORGE [Concomitant]
  5. METFORMIN HCL [Concomitant]
  6. PRADAXA [Suspect]
     Indication: ATRIAL FIBRILLATION
     Dosage: 300 MG
     Route: 048
     Dates: start: 20110802
  7. METOPROLOL TARTRATE [Concomitant]

REACTIONS (2)
  - CONTUSION [None]
  - OEDEMA PERIPHERAL [None]
